FAERS Safety Report 16199272 (Version 3)
Quarter: 2019Q2

REPORT INFORMATION
  Report Type: Spontaneous
  Country: RO (occurrence: RO)
  Receive Date: 20190415
  Receipt Date: 20190605
  Transmission Date: 20190711
  Serious: Yes (Hospitalization, Other)
  Sender: FDA-Public Use
  Company Number: RO-MYLANLABS-2019M1035022

PATIENT
  Age: 43 Year
  Sex: Female

DRUGS (3)
  1. DULOXETINE. [Suspect]
     Active Substance: DULOXETINE
     Indication: SCHIZOPHRENIA
     Dosage: 60 MILLIGRAM
     Route: 048
     Dates: start: 2004
  2. ARIPIPRAZOLE. [Suspect]
     Active Substance: ARIPIPRAZOLE
     Indication: SCHIZOPHRENIA
     Dosage: 10 MILLIGRAM
     Route: 048
     Dates: start: 2004
  3. SODIUM VALPROATE [Suspect]
     Active Substance: VALPROATE SODIUM
     Indication: SCHIZOPHRENIA
     Dosage: 500 MILLIGRAM
     Route: 048
     Dates: start: 2004

REACTIONS (5)
  - Schizophrenia [Recovered/Resolved]
  - Therapeutic response decreased [Unknown]
  - Product use in unapproved indication [Unknown]
  - Treatment noncompliance [Recovering/Resolving]
  - Intentional product misuse [Unknown]

NARRATIVE: CASE EVENT DATE: 20130417
